FAERS Safety Report 21386097 (Version 1)
Quarter: 2022Q3

REPORT INFORMATION
  Report Type: Spontaneous
  Country: US (occurrence: None)
  Receive Date: 20220926
  Receipt Date: 20220926
  Transmission Date: 20221027
  Serious: Yes (Death)
  Sender: FDA-Public Use
  Company Number: None

PATIENT
  Age: 69 Year
  Sex: Female

DRUGS (9)
  1. CAPECITABINE [Suspect]
     Active Substance: CAPECITABINE
     Indication: Breast cancer
     Dosage: FREQUENCY : AS DIRECTED;?TAKE 3 TABLETS (1500 MG) BY MOUTH TWICE DAILY ON DAYS 1-7 AND ON DAYS 15-21
     Route: 048
     Dates: start: 20210209
  2. CAPECITABINE [Suspect]
     Active Substance: CAPECITABINE
     Dosage: FREQUENCY : AS DIRECTED;?
     Route: 048
  3. CELEBREX [Concomitant]
     Active Substance: CELECOXIB
  4. GABAPENTIN [Concomitant]
     Active Substance: GABAPENTIN
  5. MIRTAZAPINE [Concomitant]
     Active Substance: MIRTAZAPINE
  6. ONDANSETRON [Concomitant]
     Active Substance: ONDANSETRON
  7. OXYCODONE [Concomitant]
     Active Substance: OXYCODONE
  8. PREDNISONE [Concomitant]
     Active Substance: PREDNISONE
  9. XGEVA [Concomitant]
     Active Substance: DENOSUMAB

REACTIONS (1)
  - Death [None]

NARRATIVE: CASE EVENT DATE: 20220906
